FAERS Safety Report 22133321 (Version 1)
Quarter: 2023Q1

REPORT INFORMATION
  Report Type: Spontaneous
  Country: JP (occurrence: JP)
  Receive Date: 20230324
  Receipt Date: 20230324
  Transmission Date: 20230418
  Serious: Yes (Other)
  Sender: FDA-Public Use
  Company Number: JP-ABBVIE-4700525

PATIENT
  Age: 50 Year
  Sex: Female

DRUGS (6)
  1. HUMIRA [Suspect]
     Active Substance: ADALIMUMAB
     Indication: Pustular psoriasis
     Route: 058
     Dates: start: 20220428
  2. HUMIRA [Suspect]
     Active Substance: ADALIMUMAB
     Route: 058
     Dates: start: 20220725, end: 20221122
  3. HUMIRA [Suspect]
     Active Substance: ADALIMUMAB
     Route: 058
     Dates: start: 20210729, end: 20211230
  4. SKYRIZI [Suspect]
     Active Substance: RISANKIZUMAB-RZAA
     Indication: Pustular psoriasis
     Dosage: FORM STRENGTH: 150 MG
     Route: 058
     Dates: start: 20221229, end: 20221229
  5. SKYRIZI [Suspect]
     Active Substance: RISANKIZUMAB-RZAA
     Route: 058
     Dates: start: 20221202, end: 20221202
  6. APREMILAST [Concomitant]
     Active Substance: APREMILAST
     Indication: Pustular psoriasis
     Dates: start: 20220420

REACTIONS (6)
  - Squamous cell carcinoma of skin [Not Recovered/Not Resolved]
  - Rash [Unknown]
  - Erythema [Recovered/Resolved]
  - Pustule [Recovering/Resolving]
  - Therapeutic product effect incomplete [Unknown]
  - Metastases to lymph nodes [Not Recovered/Not Resolved]

NARRATIVE: CASE EVENT DATE: 20220401
